FAERS Safety Report 15436296 (Version 1)
Quarter: 2018Q3

REPORT INFORMATION
  Report Type: Spontaneous
  Country: US (occurrence: US)
  Receive Date: 20180924
  Receipt Date: 20180924
  Transmission Date: 20181010
  Serious: Yes (Hospitalization)
  Sender: FDA-Public Use
  Company Number: None

PATIENT
  Age: 65 Year
  Sex: Female
  Weight: 62.1 kg

DRUGS (1)
  1. AMOX?CLAV 875?125 MG TABLET [Suspect]
     Active Substance: AMOXICILLIN\CLAVULANATE POTASSIUM
     Indication: LYMPHADENOPATHY
     Dosage: ?          QUANTITY:1 TABLET(S);?
     Route: 048
     Dates: start: 20180813, end: 20180815

REACTIONS (4)
  - Vomiting [None]
  - Renal failure [None]
  - Diarrhoea [None]
  - Clostridium difficile infection [None]

NARRATIVE: CASE EVENT DATE: 20180816
